FAERS Safety Report 7709422-4 (Version None)
Quarter: 2011Q3

REPORT INFORMATION
  Report Type: 
  Country: None (occurrence: None)
  Receive Date: 20110825
  Receipt Date: 20110811
  Transmission Date: 20111222
  Serious: Yes (Hospitalization)
  Sender: FDA-Public Use
  Company Number: DE-UCBSA-038070

PATIENT
  Age: 6 Year
  Sex: Male
  Weight: 20 kg

DRUGS (5)
  1. KEPPRA [Suspect]
     Dosage: SINGLE DOSE: 2 ML TWICE A DAY; TOTAL DAILY DOSE: 80 MG
     Route: 048
     Dates: start: 20110711, end: 20110712
  2. VALPROATE SODIUM [Concomitant]
     Indication: EPILEPSY
     Route: 048
     Dates: start: 20090101
  3. KEPPRA [Suspect]
     Indication: EPILEPSY
     Dosage: SINGLE DOSE: 1 ML TWICE A DAY; TOTAL DAILY DOSE: 40 MG
     Route: 048
     Dates: start: 20110705, end: 20110711
  4. ETHOSUXIMIDE [Concomitant]
     Indication: EPILEPSY
     Route: 048
     Dates: start: 20090101
  5. ETHOSUXIMIDE [Concomitant]
     Dosage: DOSE DECREASED: 200 MG
     Route: 048

REACTIONS (4)
  - GENERAL PHYSICAL HEALTH DETERIORATION [None]
  - HEPATIC ENZYME ABNORMAL [None]
  - DECREASED APPETITE [None]
  - FATIGUE [None]
